FAERS Safety Report 10398378 (Version 1)
Quarter: 2014Q1

REPORT INFORMATION
  Report Type: Spontaneous
  Country: US (occurrence: None)
  Receive Date: 20130815
  Receipt Date: 20130815
  Transmission Date: 20141002
  Serious: Yes (Other)
  Sender: FDA-Public Use
  Company Number: ADR-2010-9665

PATIENT
  Sex: Male

DRUGS (2)
  1. LIORESAL INTRATHECAL (BACLOFEN INJECTION) [Suspect]
     Indication: MUSCLE SPASTICITY
     Dosage: UNK MCG , DAILY, INTRATH UNK THERAPY
  2. LIORESAL INTRATHECAL (BACLOFEN INJECTION) [Suspect]
     Indication: BRAIN INJURY
     Dosage: UNK MCG , DAILY, INTRATH UNK THERAPY

REACTIONS (4)
  - Muscle spasticity [None]
  - Constipation [None]
  - Adverse drug reaction [None]
  - Syncope [None]
